FAERS Safety Report 26218838 (Version 1)
Quarter: 2025Q4

REPORT INFORMATION
  Report Type: Spontaneous
  Country: US (occurrence: US)
  Receive Date: 20251231
  Receipt Date: 20251231
  Transmission Date: 20260117
  Serious: No
  Sender: PFIZER
  Company Number: US-PFIZER INC-PV202500150943

PATIENT
  Age: 80 Year
  Sex: Female

DRUGS (3)
  1. RIFABUTIN [Suspect]
     Active Substance: RIFABUTIN
     Indication: Lower respiratory tract infection bacterial
     Dosage: UNK
  2. AZITHROMYCIN [Suspect]
     Active Substance: AZITHROMYCIN
     Indication: Lower respiratory tract infection bacterial
     Dosage: UNK
  3. ETHAMBUTOL [Suspect]
     Active Substance: ETHAMBUTOL HYDROCHLORIDE
     Indication: Lower respiratory tract infection bacterial
     Dosage: UNK

REACTIONS (4)
  - Peripheral swelling [Unknown]
  - Dizziness [Unknown]
  - Hypertension [Unknown]
  - Vision blurred [Unknown]
